FAERS Safety Report 9928805 (Version 1)
Quarter: 2014Q1

REPORT INFORMATION
  Report Type: Spontaneous
  Country: AU (occurrence: None)
  Receive Date: 20140225
  Receipt Date: 20140225
  Transmission Date: 20141002
  Serious: Yes (Hospitalization)
  Sender: FDA-Public Use
  Company Number: 2014-000334

PATIENT
  Sex: Female

DRUGS (3)
  1. ACTONEL EC COMBI D (RISEDRONATE SODIUM, EDETATE DISODIUM, CALCIUM CARBONATE, VITAMIN D3) TABLET, 35MG [Suspect]
     Route: 048
     Dates: start: 20140124
  2. LANTUS (INSULIN GLARGINE) [Concomitant]
  3. METFORMIN (METFORMIN) [Concomitant]

REACTIONS (8)
  - Neuralgia [None]
  - Local swelling [None]
  - Hypoaesthesia [None]
  - Pain in extremity [None]
  - Local swelling [None]
  - Local swelling [None]
  - Paraesthesia [None]
  - Feeling abnormal [None]
